FAERS Safety Report 4340344-5 (Version None)
Quarter: 2004Q2

REPORT INFORMATION
  Report Type: 
  Country: None (occurrence: None)
  Receive Date: 20040405
  Receipt Date: 20040325
  Transmission Date: 20050107
  Serious: Yes (Hospitalization)
  Sender: FDA-Public Use
  Company Number: 2003-02428

PATIENT
  Age: 71 Year
  Sex: Male

DRUGS (1)
  1. IMMUCYST (BCG - IT (CONNAUGHT) ), AVENTIS PASTEUR LTD., LOT NOT REP. 1 [Suspect]
     Dosage: IN.

REACTIONS (1)
  - PULMONARY TUBERCULOSIS [None]
